FAERS Safety Report 6762395-3 (Version None)
Quarter: 2010Q2

REPORT INFORMATION
  Report Type: 
  Country: None (occurrence: None)
  Receive Date: 20100609
  Receipt Date: 20100603
  Transmission Date: 20101027
  Serious: Yes (Hospitalization, Other)
  Sender: FDA-Public Use
  Company Number: US-ROCHE-702749

PATIENT
  Age: 68 Year
  Sex: Female

DRUGS (10)
  1. HERCEPTIN [Suspect]
     Indication: BREAST CANCER
     Route: 042
     Dates: start: 20100224, end: 20100224
  2. NEULASTA [Suspect]
     Indication: CHEMOTHERAPY
     Dosage: FORM: PRE-FILLED SYRINGE
     Route: 065
     Dates: start: 20100225
  3. TAXOTERE [Suspect]
     Indication: BREAST CANCER
     Dosage: FORM: SOLUTION FOR INFUSION
     Route: 041
     Dates: start: 20100224, end: 20100224
  4. LORAZEPAM [Concomitant]
     Indication: INSOMNIA
     Dosage: AT NIGHT
  5. DOXAZOSIN MESILATE [Concomitant]
     Dosage: 1.5 EVERY MORNING.
  6. ALTACE [Concomitant]
     Dosage: ATNIGHT
  7. SINGULAIR [Concomitant]
     Indication: SEASONAL ALLERGY
     Dosage: AT NIGHT
  8. BACLOFEN [Concomitant]
  9. METFORMIN HCL [Concomitant]
     Dosage: ONE IN MORNING AND 2 IN EVE
  10. NITROFURANTOIN [Concomitant]
     Dosage: EVERY MORNING FOR UROLOGICAL

REACTIONS (7)
  - ASTHENIA [None]
  - BLOOD POTASSIUM DECREASED [None]
  - DIARRHOEA [None]
  - HAEMOGLOBIN DECREASED [None]
  - MALAISE [None]
  - OEDEMA PERIPHERAL [None]
  - PALMAR-PLANTAR ERYTHRODYSAESTHESIA SYNDROME [None]
